FAERS Safety Report 5960979-3 (Version None)
Quarter: 2008Q4

REPORT INFORMATION
  Report Type: 
  Country: None (occurrence: None)
  Receive Date: 20081121
  Receipt Date: 20081114
  Transmission Date: 20090506
  Serious: Yes (Life-Threatening, Hospitalization)
  Sender: FDA-Public Use
  Company Number: ZA-BRISTOL-MYERS SQUIBB COMPANY-14407878

PATIENT
  Age: 37 Year
  Sex: Male

DRUGS (3)
  1. EFAVIRENZ [Suspect]
     Indication: HIV INFECTION
     Route: 048
     Dates: start: 20081008, end: 20081104
  2. TRUVADA [Suspect]
     Indication: HIV INFECTION
     Dosage: 1 DOSAGE FORM=1 TAB.
     Route: 048
     Dates: start: 20081008, end: 20081103
  3. RIFAFOUR [Suspect]
     Indication: TUBERCULOSIS
     Dosage: DOSAGE FORM = TAB
     Route: 048
     Dates: start: 20080930, end: 20081102

REACTIONS (1)
  - HEPATOTOXICITY [None]
